FAERS Safety Report 13021353 (Version 1)
Quarter: 2016Q4

REPORT INFORMATION
  Report Type: Report from Study
  Country: US (occurrence: US)
  Receive Date: 20161213
  Receipt Date: 20161213
  Transmission Date: 20170207
  Serious: No
  Sender: FDA-Public Use
  Company Number: US-ALEXION PHARMACEUTICALS INC.-A201609498

PATIENT
  Sex: Female

DRUGS (1)
  1. SOLIRIS [Suspect]
     Active Substance: ECULIZUMAB
     Indication: HAEMOLYTIC URAEMIC SYNDROME
     Dosage: EVERY 4 WEEKS
     Route: 042

REACTIONS (6)
  - Neck pain [Unknown]
  - Headache [Unknown]
  - Gait disturbance [Unknown]
  - Fall [Unknown]
  - Concussion [Unknown]
  - Inappropriate schedule of drug administration [Unknown]
